FAERS Safety Report 22138228 (Version 1)
Quarter: 2023Q1

REPORT INFORMATION
  Report Type: Spontaneous
  Country: JP (occurrence: JP)
  Receive Date: 20230325
  Receipt Date: 20230325
  Transmission Date: 20230418
  Serious: Yes (Death, Other)
  Sender: FDA-Public Use
  Company Number: JP-BAXTER-2023BAX013323

PATIENT
  Age: 7 Decade
  Sex: Female

DRUGS (4)
  1. EXTRANEAL [Suspect]
     Active Substance: CALCIUM CHLORIDE\ICODEXTRIN\MAGNESIUM CHLORIDE\SODIUM CHLORIDE\SODIUM LACTATE
     Indication: Renal failure
     Dosage: 1000ML
     Route: 033
     Dates: start: 20200229
  2. REGUNEAL LCA [Suspect]
     Active Substance: CALCIUM CHLORIDE\DEXTROSE MONOHYDRATE\HYDROCHLORIC ACID\MAGNESIUM CHLORIDE\SODIUM BICARBONATE\SODIUM
     Indication: Renal failure
     Dosage: 1500ML
     Route: 033
     Dates: start: 20200325
  3. AMEZINIUM METILSULFATE [Concomitant]
     Active Substance: AMEZINIUM METILSULFATE
     Indication: Hypotension
     Dosage: UNK
     Route: 048
     Dates: end: 20230219
  4. DROXIDOPA [Concomitant]
     Active Substance: DROXIDOPA
     Indication: Hypotension
     Dosage: UNK
     Route: 048
     Dates: end: 20230219

REACTIONS (2)
  - Cardiac failure [Fatal]
  - Hypotension [Fatal]
